FAERS Safety Report 7275879 (Version 3)
Quarter: 2019Q4

REPORT INFORMATION
  Report Type: Report from Study
  Country: US (occurrence: US)
  Receive Date: 20100211
  Receipt Date: 20191230
  Transmission Date: 20200122
  Serious: Yes (Death, Hospitalization, Other)
  Sender: FDA-Public Use
  Company Number: US-ROCHE-683746

PATIENT
  Age: 66 Year
  Sex: Male
  Weight: 91.2 kg

DRUGS (5)
  1. BLINDED BEVACIZUMAB [Suspect]
     Active Substance: BEVACIZUMAB
     Indication: TRANSITIONAL CELL CARCINOMA
     Dosage: IV OVER 30-90 MINUTES, ON DAY 1.
     Route: 042
     Dates: start: 20091223
  2. ASPIRIN [ACETYLSALICYLIC ACID] [Concomitant]
     Active Substance: ASPIRIN
     Route: 065
  3. PLAVIX [Concomitant]
     Active Substance: CLOPIDOGREL BISULFATE
     Route: 065
  4. CISPLATIN. [Suspect]
     Active Substance: CISPLATIN
     Indication: TRANSITIONAL CELL CARCINOMA
     Dosage: ROUTE:IV OVER 1 HOUR ON DAY 1.TOTAL DOSE RECEIVED 146 MG IN TRIAL
     Route: 042
     Dates: start: 20091223
  5. GEMCITABINE. [Suspect]
     Active Substance: GEMCITABINE
     Indication: TRANSITIONAL CELL CARCINOMA
     Dosage: ROUTE:IV OVER 30 MINUTES ON DAY 1 AND 8 FOR CYCLES 1-6.  DATE OF LAST DOSE 30 DEC 2009.TD: 4200MG
     Route: 042
     Dates: start: 20091223

REACTIONS (10)
  - Cerebral ischaemia [Unknown]
  - Pleural effusion [Unknown]
  - Pulmonary embolism [Unknown]
  - Death [Fatal]
  - Pleural effusion [Unknown]
  - Blood albumin decreased [Unknown]
  - Thrombosis [Unknown]
  - Dyspnoea [Unknown]
  - Ischaemic stroke [Unknown]
  - Status epilepticus [Unknown]

NARRATIVE: CASE EVENT DATE: 20100109
